FAERS Safety Report 7576862-6 (Version None)
Quarter: 2011Q2

REPORT INFORMATION
  Report Type: 
  Country: None (occurrence: None)
  Receive Date: 20110624
  Receipt Date: 20110624
  Transmission Date: 20111010
  Serious: No
  Sender: FDA-Public Use
  Company Number: None

PATIENT
  Age: 27 Year
  Sex: Female
  Weight: 102.0593 kg

DRUGS (1)
  1. REMICADE [Suspect]

REACTIONS (1)
  - MULTIPLE SCLEROSIS [None]
